FAERS Safety Report 18135493 (Version 1)
Quarter: 2020Q3

REPORT INFORMATION
  Report Type: Spontaneous
  Country: US (occurrence: US)
  Receive Date: 20200811
  Receipt Date: 20200811
  Transmission Date: 20201103
  Serious: Yes (Other)
  Sender: FDA-Public Use
  Company Number: None

PATIENT
  Age: 38 Year
  Sex: Female
  Weight: 94.5 kg

DRUGS (1)
  1. GEODON [Suspect]
     Active Substance: ZIPRASIDONE HYDROCHLORIDE\ZIPRASIDONE MESYLATE
     Indication: BIPOLAR DISORDER
     Route: 048
     Dates: start: 20080315, end: 20080608

REACTIONS (6)
  - Dizziness [None]
  - Hypersensitivity [None]
  - Therapy change [None]
  - Feeling drunk [None]
  - Loss of personal independence in daily activities [None]
  - Lethargy [None]

NARRATIVE: CASE EVENT DATE: 20080608
